FAERS Safety Report 17251026 (Version 6)
Quarter: 2020Q2

REPORT INFORMATION
  Report Type: Report from Study
  Country: US (occurrence: US)
  Receive Date: 20200109
  Receipt Date: 20200507
  Transmission Date: 20200713
  Serious: Yes (Hospitalization, Other)
  Sender: FDA-Public Use
  Company Number: NVSC2020US001960

PATIENT
  Age: 86 Year
  Sex: Female

DRUGS (1)
  1. BEOVU [Suspect]
     Active Substance: BROLUCIZUMAB-DBLL
     Indication: NEOVASCULAR AGE-RELATED MACULAR DEGENERATION
     Dosage: UNK
     Route: 050
     Dates: start: 20191231

REACTIONS (9)
  - Blood pressure abnormal [Unknown]
  - Dry eye [Not Recovered/Not Resolved]
  - Conjunctival hyperaemia [Recovering/Resolving]
  - Visual impairment [Not Recovered/Not Resolved]
  - Diabetes mellitus [Unknown]
  - Vision blurred [Unknown]
  - Anaemia [Not Recovered/Not Resolved]
  - Gait disturbance [Unknown]
  - Eye pruritus [Not Recovered/Not Resolved]

NARRATIVE: CASE EVENT DATE: 20200103
